FAERS Safety Report 10099219 (Version 2)
Quarter: 2014Q2

REPORT INFORMATION
  Report Type: Spontaneous
  Country: US (occurrence: US)
  Receive Date: 20140423
  Receipt Date: 20140423
  Transmission Date: 20141212
  Serious: No
  Sender: FDA-Public Use
  Company Number: US-GILEAD-2013-0067947

PATIENT
  Sex: Female

DRUGS (3)
  1. LETAIRIS [Suspect]
     Indication: AUTOIMMUNE DISORDER
     Dosage: 10 MG, QD
     Dates: start: 20090507
  2. LETAIRIS [Suspect]
     Indication: PULMONARY HYPERTENSION
  3. GABAPENTIN 1 A PHARMA [Suspect]
     Dosage: 300 MG, QD

REACTIONS (1)
  - Dizziness [Unknown]
